FAERS Safety Report 7998222-6 (Version None)
Quarter: 2011Q4

REPORT INFORMATION
  Report Type: 
  Country: None (occurrence: None)
  Receive Date: 20111221
  Receipt Date: 20110425
  Transmission Date: 20120403
  Serious: No
  Sender: FDA-Public Use
  Company Number: US-GLAXOSMITHKLINE-A0924391A

PATIENT
  Age: 63 Year
  Sex: Male

DRUGS (10)
  1. HYDROCHLOROTHIAZIDE [Concomitant]
  2. ALLOPURINOL [Concomitant]
  3. PLAVIX [Concomitant]
  4. SYNTHROID [Concomitant]
  5. ZETIA [Concomitant]
  6. LOVAZA [Suspect]
     Indication: BLOOD CHOLESTEROL INCREASED
     Dosage: 2CAP TWICE PER DAY
     Route: 048
     Dates: start: 20100101
  7. GLUCOPHAGE [Concomitant]
  8. ZANTAC [Concomitant]
  9. ATENOLOL [Concomitant]
  10. ASPIRIN [Concomitant]

REACTIONS (2)
  - PRODUCT QUALITY ISSUE [None]
  - NAUSEA [None]
